FAERS Safety Report 17010202 (Version 1)
Quarter: 2019Q4

REPORT INFORMATION
  Report Type: Spontaneous
  Country: US (occurrence: US)
  Receive Date: 20191108
  Receipt Date: 20191108
  Transmission Date: 20200122
  Serious: No
  Sender: FDA-Public Use
  Company Number: US-PFIZER INC-2019479917

PATIENT
  Age: 32 Year
  Sex: Male

DRUGS (1)
  1. ADVIL MULTI-SYMPTOM COLD AND FLU [Suspect]
     Active Substance: CHLORPHENIRAMINE MALEATE\IBUPROFEN\PHENYLEPHRINE HYDROCHLORIDE
     Dosage: 2 DF, UNK

REACTIONS (2)
  - Wrong dose [Unknown]
  - Somnolence [Unknown]

NARRATIVE: CASE EVENT DATE: 20191104
